FAERS Safety Report 6516726-X (Version None)
Quarter: 2009Q4

REPORT INFORMATION
  Report Type: 
  Country: None (occurrence: None)
  Receive Date: 20091223
  Receipt Date: 20091218
  Transmission Date: 20100525
  Serious: Yes (Hospitalization)
  Sender: FDA-Public Use
  Company Number: GB-TEVA-218460ISR

PATIENT
  Age: 42 Year
  Sex: Female

DRUGS (3)
  1. PHENYTOIN [Suspect]
     Indication: MENINGIOMA
     Route: 048
     Dates: start: 20091116, end: 20091209
  2. PHENYTOIN [Concomitant]
  3. DEXAMETHASONE TAB [Suspect]
     Indication: MENINGIOMA
     Route: 048
     Dates: start: 20091116, end: 20091125

REACTIONS (2)
  - LIVER FUNCTION TEST ABNORMAL [None]
  - MOUTH ULCERATION [None]
